FAERS Safety Report 25267050 (Version 1)
Quarter: 2025Q2

REPORT INFORMATION
  Report Type: Spontaneous
  Country: GB (occurrence: GB)
  Receive Date: 20250505
  Receipt Date: 20250505
  Transmission Date: 20250717
  Serious: Yes (Hospitalization, Other)
  Sender: DEXCEL LTD.
  Company Number: None

PATIENT
  Age: 67 Year
  Sex: Female

DRUGS (13)
  1. BISOPROLOL [Concomitant]
     Active Substance: BISOPROLOL
     Dosage: EXPIRY: 4/2025
     Route: 048
     Dates: start: 20250417
  2. baclofen liquid gastrostomyBACLOFEN (Specific Substance SUB538) [Concomitant]
     Dosage: GASTROSTOMY 20 MG THREE TIMES A DAY
  3. buprenorphineBUPRENORPHINE (Specific Substance SUB1073) [Concomitant]
     Dosage: 20 MCG/HOUR TOPICAL 1 PATCH ONCE A WEEK ON TUESDAY
     Route: 061
  4. co-careldopa 12.5 mg-50 mgCO-CARELDOPA [Concomitant]
     Dosage: 12.5 MG-50 MG ORAL TABLET TABLET GASTROSTOMY 1 TABLET THREE TIMES A DAY
  5. Oramorph 10 mg/5 mL oral solution liquidORAMORPH (Specific MP Group... [Concomitant]
     Indication: Pain
     Dosage: 10 MG/5 ML ORAL SOLUTION LIQUID GASTROSTOMY 5 MG FOUR TIMES A DAY AS REQUIRED FOR: PAIN
  6. senna 7.5 mg/5 mLSENNA (Specific Substance SUB381) [Concomitant]
     Dosage: 7.5 MG/5 ML ORAL SYRUP LIQUID GASTROSTOMY 5 ML ONCE A DAY (EVENING)
  7. INDAPAMIDE [Suspect]
     Active Substance: INDAPAMIDE
     Route: 048
     Dates: start: 202409
  8. LansoprazoleLANSOPRAZOLE (Specific Substance SUB943) [Concomitant]
     Dosage: GASTROSTOMY 15 MG TWICE A DAY
  9. LOSARTAN [Suspect]
     Active Substance: LOSARTAN
     Route: 048
  10. LevothyroxineLEVOTHYROXINE (Specific Substance SUB532) [Concomitant]
     Route: 048
  11. OMEPRAZOLE [Suspect]
     Active Substance: OMEPRAZOLE
     Dosage: CHANGED TO LANSOPRAZOLE 15MG BD
     Route: 048
  12. AMLODIPINE [Concomitant]
     Active Substance: AMLODIPINE BESYLATE
     Route: 048
     Dates: start: 202409
  13. AMLODIPINE [Concomitant]
     Active Substance: AMLODIPINE BESYLATE
     Dates: end: 202409

REACTIONS (7)
  - Electrolyte imbalance [Unknown]
  - Osmotic demyelination syndrome [Unknown]
  - Somnolence [Unknown]
  - Confusional state [Unknown]
  - Osmotic demyelination syndrome [Unknown]
  - Hypokalaemia [Recovered/Resolved with Sequelae]
  - Hyponatraemia [Recovered/Resolved with Sequelae]

NARRATIVE: CASE EVENT DATE: 20240923
